FAERS Safety Report 5041092-9 (Version None)
Quarter: 2006Q3

REPORT INFORMATION
  Report Type: 
  Country: None (occurrence: None)
  Receive Date: 20060703
  Receipt Date: 20060215
  Transmission Date: 20061208
  Serious: Yes (Hospitalization)
  Sender: FDA-Public Use
  Company Number: US-ROCHE-436812

PATIENT
  Age: 21 Year
  Sex: Male

DRUGS (2)
  1. ACCUTANE [Suspect]
     Indication: DRUG USE FOR UNKNOWN INDICATION
     Route: 048
     Dates: start: 20040106, end: 20040309
  2. ACCUTANE [Suspect]
     Route: 048
     Dates: start: 20040310, end: 20040515

REACTIONS (20)
  - ABDOMINAL DISCOMFORT [None]
  - APPENDICITIS [None]
  - BLOOD ALBUMIN DECREASED [None]
  - BLOOD CALCIUM DECREASED [None]
  - BLOOD CHOLESTEROL INCREASED [None]
  - BLOOD LACTATE DEHYDROGENASE INCREASED [None]
  - BLOOD TRIGLYCERIDES INCREASED [None]
  - CROHN'S DISEASE [None]
  - DRY SKIN [None]
  - HYPERALBUMINAEMIA [None]
  - HYPOKALAEMIA [None]
  - ILEUS [None]
  - INFLAMMATION [None]
  - LEUKOCYTOSIS [None]
  - LIP DRY [None]
  - LUNG DISORDER [None]
  - MALNUTRITION [None]
  - NEUROPATHY [None]
  - SMALL INTESTINAL OBSTRUCTION [None]
  - WEIGHT DECREASED [None]
